FAERS Safety Report 4337485-5 (Version None)
Quarter: 2004Q2

REPORT INFORMATION
  Report Type: 
  Country: None (occurrence: None)
  Receive Date: 20040413
  Receipt Date: 20040401
  Transmission Date: 20050107
  Serious: Yes (Hospitalization)
  Sender: FDA-Public Use
  Company Number: FR-BRISTOL-MYERS SQUIBB COMPANY-12547881

PATIENT
  Age: 34 Year
  Sex: Male

DRUGS (11)
  1. VIDEX [Suspect]
     Indication: HIV INFECTION
     Dosage: DOSE REDUCED TO 250 MG DAILY ON 31-MAR-2003
     Route: 048
     Dates: start: 20021017
  2. VIREAD [Suspect]
     Indication: HIV INFECTION
     Route: 048
     Dates: start: 20021017, end: 20030612
  3. KALETRA [Concomitant]
     Route: 048
     Dates: start: 20021017
  4. CRIXIVAN [Concomitant]
     Route: 048
     Dates: start: 20030331, end: 20030626
  5. NORVIR [Concomitant]
     Route: 048
     Dates: start: 20030331, end: 20030626
  6. TERCIAN [Concomitant]
     Route: 048
     Dates: start: 20000215
  7. DEROXAT [Concomitant]
     Route: 048
     Dates: start: 20011216
  8. GARDENALE [Concomitant]
     Route: 048
     Dates: start: 20000215
  9. TEGRETOL [Concomitant]
     Route: 048
     Dates: start: 20000215
  10. SERESTA [Concomitant]
     Route: 048
     Dates: start: 20000215
  11. HALDOL DECANOATE 100 [Concomitant]
     Route: 030
     Dates: start: 20020215

REACTIONS (3)
  - BLOOD PRESSURE INCREASED [None]
  - JOINT EFFUSION [None]
  - RENAL FAILURE ACUTE [None]
